FAERS Safety Report 24273059 (Version 1)
Quarter: 2024Q3

REPORT INFORMATION
  Report Type: Spontaneous
  Country: US (occurrence: US)
  Receive Date: 20240902
  Receipt Date: 20240902
  Transmission Date: 20241017
  Serious: No
  Sender: ROCHE
  Company Number: US-ROCHE-10000070138

PATIENT
  Age: 75 Year
  Sex: Female

DRUGS (2)
  1. ENTRECTINIB [Suspect]
     Active Substance: ENTRECTINIB
     Indication: Non-small cell lung cancer metastatic
     Route: 065
  2. ENTRECTINIB [Suspect]
     Active Substance: ENTRECTINIB
     Route: 065
     Dates: start: 202306

REACTIONS (2)
  - Taste disorder [Recovering/Resolving]
  - Skin burning sensation [Recovering/Resolving]
